FAERS Safety Report 5967975-0 (Version None)
Quarter: 2008Q4

REPORT INFORMATION
  Report Type: 
  Country: None (occurrence: None)
  Receive Date: 20081121
  Receipt Date: 20081112
  Transmission Date: 20090506
  Serious: Yes (Hospitalization)
  Sender: FDA-Public Use
  Company Number: 2008JP004100

PATIENT
  Age: 70 Year
  Sex: Male
  Weight: 51 kg

DRUGS (8)
  1. FUNGUARD(MICAFUNGIN) INJECTION [Suspect]
     Indication: BRONCHOPULMONARY ASPERGILLOSIS
     Dosage: 150 MG, UID/QD, IV DRIP
     Route: 041
     Dates: start: 20080716, end: 20080812
  2. BETHANECHOL CHLORIDE [Suspect]
     Indication: BENIGN PROSTATIC HYPERPLASIA
     Dosage: 15 MG, TID, ORAL
     Route: 048
     Dates: start: 20080724, end: 20080827
  3. PREDNISOLONE [Concomitant]
  4. PARIET (RABEPRAZOLE SODIUM) [Concomitant]
  5. BIO THREE (CLOSTRIDIUM BUTYRICUM) [Concomitant]
  6. VANCOMIN (MECOBALAMIN) [Concomitant]
  7. JUVELA N (TOCOPHERYL NICOTINATE) [Concomitant]
  8. ELENTAL (VITAMINS NOS, MINERALS NOS) [Concomitant]

REACTIONS (3)
  - APLASIA PURE RED CELL [None]
  - FOLATE DEFICIENCY [None]
  - HAEMORRHOIDAL HAEMORRHAGE [None]
